FAERS Safety Report 16158314 (Version 2)
Quarter: 2019Q2

REPORT INFORMATION
  Report Type: Spontaneous
  Country: JP (occurrence: JP)
  Receive Date: 20190404
  Receipt Date: 20190429
  Transmission Date: 20190711
  Serious: Yes (Other)
  Sender: FDA-Public Use
  Company Number: JP-INCYTE CORPORATION-2019IN003357

PATIENT

DRUGS (3)
  1. JAKAVI [Suspect]
     Active Substance: RUXOLITINIB
     Indication: POLYCYTHAEMIA VERA
     Dosage: 5 MG, UNK
     Route: 048
     Dates: start: 201902, end: 201903
  2. TALION [BEPOTASTINE BESILATE] [Suspect]
     Active Substance: BEPOTASTINE BESILATE
     Dosage: UNK
     Route: 065
  3. TALION [BEPOTASTINE BESILATE] [Suspect]
     Active Substance: BEPOTASTINE BESILATE
     Indication: PRODUCT USED FOR UNKNOWN INDICATION
     Dosage: UNK
     Route: 065

REACTIONS (3)
  - Loss of consciousness [Recovered/Resolved]
  - Somnolence [Recovered/Resolved]
  - Accident [Recovered/Resolved]

NARRATIVE: CASE EVENT DATE: 201903
